FAERS Safety Report 8483918-2 (Version None)
Quarter: 2012Q3

REPORT INFORMATION
  Report Type: 
  Country: None (occurrence: None)
  Receive Date: 20120703
  Receipt Date: 20120629
  Transmission Date: 20120928
  Serious: No
  Sender: FDA-Public Use
  Company Number: US-PFIZER INC-2012156476

PATIENT
  Sex: Male
  Weight: 94.331 kg

DRUGS (15)
  1. HYDROCHLOROTHIAZIDE [Concomitant]
     Dosage: UNK
  2. POTASSIUM CHLORIDE [Concomitant]
     Dosage: UNK
  3. METFORMIN [Concomitant]
     Dosage: UNK
  4. PRADAXA [Concomitant]
     Dosage: UNK
  5. LOVAZA [Concomitant]
     Dosage: UNK
  6. TOVIAZ [Suspect]
     Indication: HYPERTONIC BLADDER
     Dosage: 4 MG, 1X/DAY
     Route: 048
     Dates: start: 20120621, end: 20120627
  7. CELEXA [Concomitant]
     Indication: CONSTIPATION
     Dosage: UNK
  8. LIPITOR [Concomitant]
     Dosage: UNK
  9. CENTRUM CARDIO [Concomitant]
     Dosage: UNK
  10. ALPRAZOLAM [Concomitant]
     Dosage: UNK
  11. ASCORBIC ACID [Concomitant]
     Dosage: UNK
  12. PLAVIX [Concomitant]
     Dosage: UNK
  13. METOPROLOL [Concomitant]
     Dosage: UNK
  14. GLYBURIDE [Concomitant]
     Dosage: UNK
  15. VITAMIN D [Concomitant]
     Dosage: UNK

REACTIONS (4)
  - CONSTIPATION [None]
  - DRY MOUTH [None]
  - TONGUE DISORDER [None]
  - DYSGEUSIA [None]
